FAERS Safety Report 4389483-3 (Version None)
Quarter: 2004Q3

REPORT INFORMATION
  Report Type: 
  Country: None (occurrence: None)
  Receive Date: 20040702
  Receipt Date: 20040209
  Transmission Date: 20050211
  Serious: Yes (Death)
  Sender: FDA-Public Use
  Company Number: PHBS2004CA02186

PATIENT

DRUGS (2)
  1. LAMISIL [Suspect]
     Indication: FUNGAL INFECTION
     Route: 048
  2. LAMICTAL [Suspect]

REACTIONS (1)
  - MEDICATION ERROR [None]
